FAERS Safety Report 14184519 (Version 3)
Quarter: 2017Q4

REPORT INFORMATION
  Report Type: Spontaneous
  Country: BR (occurrence: BR)
  Receive Date: 20171113
  Receipt Date: 20171121
  Transmission Date: 20180321
  Serious: No
  Sender: FDA-Public Use
  Company Number: BR-PFIZER INC-2009243190

PATIENT
  Age: 47 Year
  Sex: Female

DRUGS (3)
  1. DETRUSITOL [Suspect]
     Active Substance: TOLTERODINE TARTRATE
     Indication: URINARY INCONTINENCE
  2. DETRUSITOL [Suspect]
     Active Substance: TOLTERODINE TARTRATE
     Indication: HYPERTONIC BLADDER
     Dosage: 1 TABLET OF 4 MG, DAILY (IN THE MORNING AFTER THE COFFEE)
     Dates: start: 2009, end: 201709
  3. DETRUSITOL [Suspect]
     Active Substance: TOLTERODINE TARTRATE
     Indication: REDUCED BLADDER CAPACITY

REACTIONS (3)
  - Drug effect incomplete [Not Recovered/Not Resolved]
  - Headache [Unknown]
  - Migraine [Unknown]

NARRATIVE: CASE EVENT DATE: 200807
